FAERS Safety Report 13355459 (Version 1)
Quarter: 2017Q1

REPORT INFORMATION
  Report Type: Spontaneous
  Country: BR (occurrence: BR)
  Receive Date: 20170321
  Receipt Date: 20170321
  Transmission Date: 20170429
  Serious: Yes (Other)
  Sender: FDA-Public Use
  Company Number: BR-PFIZER INC-2017117875

PATIENT
  Sex: Male

DRUGS (1)
  1. VENLAFAXINE HCL [Suspect]
     Active Substance: VENLAFAXINE HYDROCHLORIDE
     Dosage: UNK
     Dates: start: 2012

REACTIONS (10)
  - Asthenia [Unknown]
  - Sperm concentration decreased [Unknown]
  - Diarrhoea [Unknown]
  - Paraesthesia [Unknown]
  - Vision blurred [Unknown]
  - Sluggishness [Unknown]
  - Somnolence [Unknown]
  - Hyperthyroidism [Unknown]
  - Bradyphrenia [Unknown]
  - Libido decreased [Unknown]
